FAERS Safety Report 4912969-7 (Version None)
Quarter: 2006Q1

REPORT INFORMATION
  Report Type: 
  Country: None (occurrence: None)
  Receive Date: 20060210
  Receipt Date: 20060127
  Transmission Date: 20060701
  Serious: Yes (Death, Hospitalization)
  Sender: FDA-Public Use
  Company Number: L05-USA-03935-38

PATIENT
  Age: 55 Year
  Sex: Female

DRUGS (16)
  1. ESCITALOPRAM OXALATE [Suspect]
  2. CITALOPRAM [Suspect]
  3. ACETAMINOPHEN W/ CODEINE [Suspect]
  4. ACETAMINOPHEN AND HYDROCODONE BITARTRATE [Suspect]
  5. IBUPROFEN [Suspect]
  6. NABUMETONE [Suspect]
  7. CELECOXIB [Suspect]
  8. ZOLPIDEM [Suspect]
  9. METRONIDAZOLE [Suspect]
  10. DIAZEPAM [Suspect]
  11. METAXALONE [Suspect]
  12. AMITRIPTYLINE HCL [Suspect]
  13. METFORMIN [Suspect]
  14. ASPIRIN [Suspect]
  15. BUPROPION HCL [Suspect]
  16. PROMETHAZINE/CODEINE (PROMETHAZINE W/CODEINE) [Suspect]

REACTIONS (16)
  - ALANINE AMINOTRANSFERASE INCREASED [None]
  - ASPARTATE AMINOTRANSFERASE INCREASED [None]
  - BLOOD BILIRUBIN INCREASED [None]
  - BLOOD CREATINE PHOSPHOKINASE INCREASED [None]
  - BLOOD CREATININE INCREASED [None]
  - BLOOD UREA INCREASED [None]
  - CARDIAC FAILURE CONGESTIVE [None]
  - CEREBRAL INFARCTION [None]
  - COMA [None]
  - COMPLETED SUICIDE [None]
  - HYPERTENSION [None]
  - INTERNATIONAL NORMALISED RATIO INCREASED [None]
  - LOSS OF CONSCIOUSNESS [None]
  - PNEUMONIA [None]
  - POSTURING [None]
  - TROPONIN INCREASED [None]
